FAERS Safety Report 8228416-6 (Version None)
Quarter: 2012Q1

REPORT INFORMATION
  Report Type: 
  Country: None (occurrence: None)
  Receive Date: 20120322
  Receipt Date: 20110711
  Transmission Date: 20120608
  Serious: Yes (Other)
  Sender: FDA-Public Use
  Company Number: US-BRISTOL-MYERS SQUIBB COMPANY-15893977

PATIENT
  Age: 54 Year
  Sex: Male

DRUGS (1)
  1. ERBITUX [Suspect]
     Indication: TONSIL CANCER
     Dosage: 1DF=20MG/10ML(TEST DOSE)

REACTIONS (4)
  - RASH [None]
  - HYPERHIDROSIS [None]
  - VOMITING [None]
  - BLOOD PRESSURE DECREASED [None]
